FAERS Safety Report 15686921 (Version 1)
Quarter: 2018Q4

REPORT INFORMATION
  Report Type: Report from Study
  Country: US (occurrence: US)
  Receive Date: 20181204
  Receipt Date: 20181204
  Transmission Date: 20190205
  Serious: Yes (Other)
  Sender: FDA-Public Use
  Company Number: US-GILEAD-2018-0378228

PATIENT
  Sex: Female

DRUGS (28)
  1. CO Q 10 [UBIDECARENONE] [Concomitant]
  2. HYDROCORT [HYDROCORTISONE ACETATE] [Concomitant]
  3. ALPHA LIPOIC ACID [Concomitant]
     Active Substance: .ALPHA.-LIPOIC ACID
  4. PULMICORT TURBUHALER [Concomitant]
     Active Substance: BUDESONIDE
  5. TYLENOL [Concomitant]
     Active Substance: ACETAMINOPHEN
  6. CALCITRIOL. [Concomitant]
     Active Substance: CALCITRIOL
  7. CREATINE [Concomitant]
     Active Substance: CREATINE
  8. PREDNISONE. [Concomitant]
     Active Substance: PREDNISONE
  9. PRILOSEC [Concomitant]
     Active Substance: OMEPRAZOLE MAGNESIUM
  10. SWEEN [Concomitant]
  11. STELARA [Suspect]
     Active Substance: USTEKINUMAB
     Indication: PSORIASIS
     Dosage: INJECT 1 SYRINGE SUBCUTANEOUS EVERY 3 MONTHS
     Route: 058
     Dates: start: 20140327
  12. ZYRTEC [Concomitant]
     Active Substance: CETIRIZINE HYDROCHLORIDE
  13. SODIUM CHLORIDE. [Concomitant]
     Active Substance: SODIUM CHLORIDE
  14. ZANTAC [Concomitant]
     Active Substance: RANITIDINE HYDROCHLORIDE
  15. CALCIUM [Concomitant]
     Active Substance: CALCIUM
  16. FOSAMAX [Concomitant]
     Active Substance: ALENDRONATE SODIUM
  17. GAMMAGARD [Concomitant]
     Active Substance: HUMAN IMMUNOGLOBULIN G
  18. HYDROCHLOROTH [Concomitant]
     Active Substance: HYDROCHLOROTHIAZIDE
  19. PULMOZYME [Suspect]
     Active Substance: DORNASE ALFA
     Indication: CYSTIC FIBROSIS
     Dosage: INHALE 2.5MG EVERY DAY
     Route: 055
     Dates: start: 20060320
  20. FLONASE [Concomitant]
     Active Substance: FLUTICASONE PROPIONATE
  21. NORDITROPIN [Concomitant]
     Active Substance: SOMATROPIN
  22. PROCARDIA [NIFEDIPINE] [Concomitant]
  23. VITAMIN B [Concomitant]
     Active Substance: VITAMIN B
  24. AZTREONAM LYSINE [Suspect]
     Active Substance: AZTREONAM LYSINE
     Indication: CYSTIC FIBROSIS
     Dosage: UNK, TID FOR 28 DAYS ON THEN 28 DAYS OFF
     Route: 055
     Dates: start: 20170511
  25. ALBUTEROL [SALBUTAMOL] [Concomitant]
     Active Substance: ALBUTEROL
  26. CYPROHEPTADIN [Concomitant]
  27. METFORMIN [Concomitant]
     Active Substance: METFORMIN HYDROCHLORIDE
  28. MULTIVITAMIN [VITAMINS NOS] [Concomitant]

REACTIONS (1)
  - Mechanical ventilation [Unknown]
